FAERS Safety Report 16482974 (Version 2)
Quarter: 2019Q3

REPORT INFORMATION
  Report Type: Spontaneous
  Country: NL (occurrence: NL)
  Receive Date: 20190627
  Receipt Date: 20190703
  Transmission Date: 20191004
  Serious: Yes (Hospitalization)
  Sender: FDA-Public Use
  Company Number: NL-TEVA-2019-NL-1069918

PATIENT
  Age: 77 Year
  Sex: Female
  Weight: 75 kg

DRUGS (16)
  1. BECLOMETASON/FORMOTEROL 100/6UG [Concomitant]
     Dosage: 2D1
  2. AMIODARON [Concomitant]
     Active Substance: AMIODARONE
     Dosage: 1 D 200 MG
  3. ENALAPRIL [Concomitant]
     Active Substance: ENALAPRIL
     Dosage: 1 D 20 MG
  4. CALCIUM/VIT D 1D 2,5G/800IE [Concomitant]
  5. FERROFUMARAAT [Concomitant]
     Dosage: 1 D 200 MG
  6. GLIMEPIRIDE. [Concomitant]
     Active Substance: GLIMEPIRIDE
     Dosage: 1 D 2T 3 MG
  7. METOPROLOL. [Concomitant]
     Active Substance: METOPROLOL
     Dosage: 1D 50MG
  8. PANTOPRAZOL MAAGSAPRESISTENTE TABLET, 40 MG (MILLIGRAM) [Suspect]
     Active Substance: PANTOPRAZOLE SODIUM
     Indication: GASTRIC DISORDER
     Dosage: 2D1T
     Dates: start: 2019
  9. SPIRONOLACTON [Concomitant]
     Active Substance: SPIRONOLACTONE
     Dosage: 1 D 25 MG
  10. FUROSEMIDE. [Concomitant]
     Active Substance: FUROSEMIDE
     Dosage: 1 D 40 MG
  11. ROSUVASTATINE [Concomitant]
     Active Substance: ROSUVASTATIN
     Dosage: 1 D 20 MG
  12. ACETYLSALICYLZUUR [Concomitant]
     Active Substance: ASPIRIN
     Dosage: 1 D 80 MG
  13. ZOPICLON [Concomitant]
     Active Substance: ZOPICLONE
     Dosage: 1 D 7.5 MG
  14. APIXABAN [Concomitant]
     Active Substance: APIXABAN
     Dosage: 2 D 5 MG
  15. OXAZEPAM. [Concomitant]
     Active Substance: OXAZEPAM
     Dosage: 2-3D 10MG
  16. LANTUS [Concomitant]
     Active Substance: INSULIN GLARGINE
     Dosage: 1 D 20 IU

REACTIONS (3)
  - Hypocalcaemia [Recovering/Resolving]
  - Hypomagnesaemia [Recovering/Resolving]
  - Hypokalaemia [Recovering/Resolving]

NARRATIVE: CASE EVENT DATE: 20190605
